FAERS Safety Report 7089461-X (Version None)
Quarter: 2010Q4

REPORT INFORMATION
  Report Type: 
  Country: None (occurrence: None)
  Receive Date: 20101108
  Receipt Date: 20101028
  Transmission Date: 20110411
  Serious: Yes (Disabling, Other)
  Sender: FDA-Public Use
  Company Number: US-JNJFOC-20100510221

PATIENT
  Sex: Female

DRUGS (1)
  1. LEVAQUIN [Suspect]
     Indication: SINUSITIS
     Route: 048

REACTIONS (5)
  - CARTILAGE INJURY [None]
  - MENISCUS LESION [None]
  - PLANTAR FASCIITIS [None]
  - TENDON RUPTURE [None]
  - TENDONITIS [None]
